FAERS Safety Report 8603285-0 (Version None)
Quarter: 2012Q3

REPORT INFORMATION
  Report Type: 
  Country: None (occurrence: None)
  Receive Date: 20120817
  Receipt Date: 20120815
  Transmission Date: 20120928
  Serious: Yes (Other)
  Sender: FDA-Public Use
  Company Number: US-TEVA-354234USA

PATIENT
  Sex: Male

DRUGS (2)
  1. ALLOPURINOL [Concomitant]
  2. TREANDA [Suspect]
     Indication: CHRONIC LYMPHOCYTIC LEUKAEMIA
     Route: 042

REACTIONS (4)
  - WHITE BLOOD CELL COUNT DECREASED [None]
  - APLASIA PURE RED CELL [None]
  - HAEMOLYTIC ANAEMIA [None]
  - RASH [None]
